FAERS Safety Report 5009598-6 (Version None)
Quarter: 2006Q2

REPORT INFORMATION
  Report Type: 
  Country: None (occurrence: None)
  Receive Date: 20060522
  Receipt Date: 20060511
  Transmission Date: 20061013
  Serious: Yes (Death)
  Sender: FDA-Public Use
  Company Number: 2006-05-1023

PATIENT
  Age: 63 Year
  Sex: Male
  Weight: 79 kg

DRUGS (10)
  1. INTEGRILIN [Suspect]
     Indication: THROMBOSIS PROPHYLAXIS
     Dosage: BOLUS-13 ML* INTRAVENOUS
     Route: 042
     Dates: start: 20060421, end: 20060421
  2. INTEGRILIN [Suspect]
     Indication: THROMBOSIS PROPHYLAXIS
     Dosage: BOLUS-13 ML* INTRAVENOUS
     Route: 042
     Dates: start: 20060421, end: 20060421
  3. BLINDED STUDY CATEGORY - NON-SCHERING DRUGS INJECTABLE SOLUTION [Suspect]
     Indication: PERCUTANEOUS CORONARY INTERVENTION
     Dosage: 5.8-46.2 ML* INTRAVENOUS
     Route: 042
     Dates: start: 20060421, end: 20060421
  4. BLINDED STUDY CATEGORY - NON-SCHERING DRUGS INJECTABLE SOLUTION [Suspect]
     Indication: PERCUTANEOUS CORONARY INTERVENTION
     Dosage: 5.8-46.2 ML* INTRAVENOUS
     Route: 042
     Dates: start: 20060421, end: 20060421
  5. BLINDED STUDY CATEGORY - NON-SCHERING DRUGS CAPSULES [Suspect]
     Indication: PERCUTANEOUS CORONARY INTERVENTION
     Dosage: 4 CAPSULES ORAL
     Route: 048
     Dates: start: 20060421, end: 20060421
  6. ANGIOMAX [Suspect]
     Indication: THROMBOSIS PROPHYLAXIS
     Dosage: 28 ML/HR INTRAVENOUS
     Route: 042
     Dates: start: 20060421, end: 20060421
  7. BAYER ASPIRIN ORAL [Suspect]
     Indication: THROMBOSIS PROPHYLAXIS
     Dosage: 325 MG DAILY ORAL
     Route: 048
  8. LIPITOR [Concomitant]
  9. ALTACE [Concomitant]
  10. COREG [Concomitant]

REACTIONS (10)
  - BLOOD PRESSURE INCREASED [None]
  - BRAIN DAMAGE [None]
  - CEREBRAL HAEMORRHAGE [None]
  - CONFUSIONAL STATE [None]
  - CYANOSIS [None]
  - DEPRESSED LEVEL OF CONSCIOUSNESS [None]
  - GENERAL PHYSICAL HEALTH DETERIORATION [None]
  - HEMIPARESIS [None]
  - PARALYSIS FLACCID [None]
  - RESTLESSNESS [None]
